FAERS Safety Report 13683265 (Version 1)
Quarter: 2017Q2

REPORT INFORMATION
  Report Type: Spontaneous
  Country: GB (occurrence: GB)
  Receive Date: 20170623
  Receipt Date: 20170623
  Transmission Date: 20170830
  Serious: Yes (Other)
  Sender: FDA-Public Use
  Company Number: GB-PFIZER INC-2017274533

PATIENT
  Age: 45 Year
  Sex: Male
  Weight: 67 kg

DRUGS (8)
  1. CHLORPROMAZIN [Concomitant]
     Dosage: UNK
  2. DIAZEPAN [Concomitant]
     Active Substance: DIAZEPAM
     Dosage: UNK
  3. FLUCLOXACILLIN SODIUM [Concomitant]
     Active Substance: FLUCLOXACILLIN
     Dosage: UNK
  4. MIRTAZAPIN [Concomitant]
     Active Substance: MIRTAZAPINE
     Dosage: UNK
  5. RIFAMPICIN [Concomitant]
     Active Substance: RIFAMPIN
     Dosage: UNK
  6. GENTAMICIN SULFATE. [Suspect]
     Active Substance: GENTAMICIN SULFATE
     Dosage: 160 MG, 2X/DAY
     Route: 042
     Dates: end: 20170612
  7. GENTAMICIN SULFATE. [Suspect]
     Active Substance: GENTAMICIN SULFATE
     Indication: ACUTE ENDOCARDITIS
     Dosage: 80 MG, 2X/DAY
     Route: 042
     Dates: start: 20170606
  8. MORPHINE SULPHATE [Concomitant]
     Active Substance: MORPHINE SULFATE
     Dosage: UNK

REACTIONS (1)
  - Deafness [Unknown]

NARRATIVE: CASE EVENT DATE: 20170612
